FAERS Safety Report 12184604 (Version 1)
Quarter: 2016Q1

REPORT INFORMATION
  Report Type: Spontaneous
  Country: US (occurrence: US)
  Receive Date: 20160316
  Receipt Date: 20160316
  Transmission Date: 20160526
  Serious: Yes (Other)
  Sender: FDA-Public Use
  Company Number: US-BAUSCH-BL-2015-021724

PATIENT
  Age: 33 Year
  Sex: Female
  Weight: 76 kg

DRUGS (37)
  1. BACLOFEN. [Concomitant]
     Active Substance: BACLOFEN
     Indication: OSTEOARTHRITIS
     Dates: start: 20150901
  2. FENTANYL. [Concomitant]
     Active Substance: FENTANYL
     Indication: FIBROMYALGIA
  3. VOLTAREN [Concomitant]
     Active Substance: DICLOFENAC SODIUM
     Indication: OSTEOARTHRITIS
     Dates: start: 20140711
  4. VOLTAREN [Concomitant]
     Active Substance: DICLOFENAC SODIUM
     Indication: OSTEOPOROSIS
  5. BACLOFEN. [Concomitant]
     Active Substance: BACLOFEN
     Indication: OSTEOPOROSIS
  6. BENZTROPINE MESYLATE. [Concomitant]
     Active Substance: BENZTROPINE MESYLATE
     Indication: PRODUCT USED FOR UNKNOWN INDICATION
     Dates: start: 20150901
  7. LITHIUM. [Concomitant]
     Active Substance: LITHIUM
     Indication: BIPOLAR DISORDER
  8. PERCOCET [Concomitant]
     Active Substance: ACETAMINOPHEN\OXYCODONE HYDROCHLORIDE
     Indication: SCOLIOSIS
  9. PROVIGIL [Concomitant]
     Active Substance: MODAFINIL
     Indication: NARCOLEPSY
  10. TOPAMAX [Concomitant]
     Active Substance: TOPIRAMATE
     Indication: PRODUCT USED FOR UNKNOWN INDICATION
  11. LAMICTAL [Concomitant]
     Active Substance: LAMOTRIGINE
     Indication: PRODUCT USED FOR UNKNOWN INDICATION
  12. CYMBALTA [Suspect]
     Active Substance: DULOXETINE HYDROCHLORIDE
     Indication: PAIN
     Route: 065
  13. COGENTIN [Concomitant]
     Active Substance: BENZTROPINE MESYLATE
     Indication: DYSKINESIA
  14. XYREM [Suspect]
     Active Substance: SODIUM OXYBATE
     Indication: CATAPLEXY
     Route: 048
     Dates: start: 201102
  15. ZYPREXA [Suspect]
     Active Substance: OLANZAPINE
     Indication: PRODUCT USED FOR UNKNOWN INDICATION
     Route: 065
     Dates: start: 20150430, end: 20150731
  16. FENTANYL. [Concomitant]
     Active Substance: FENTANYL
     Indication: SCOLIOSIS
  17. BENZTROPINE MESILATE [Concomitant]
     Active Substance: BENZTROPINE MESYLATE
     Indication: PRODUCT USED FOR UNKNOWN INDICATION
     Dates: start: 20150804
  18. PERCOCET [Concomitant]
     Active Substance: ACETAMINOPHEN\OXYCODONE HYDROCHLORIDE
     Indication: OSTEOPOROSIS
  19. FENTANYL. [Concomitant]
     Active Substance: FENTANYL
     Indication: OSTEOARTHRITIS
     Dates: start: 20150804
  20. PROTONIX [Concomitant]
     Active Substance: PANTOPRAZOLE SODIUM
     Indication: GASTRITIS
     Dates: start: 20150804
  21. PROAIR HFA [Concomitant]
     Active Substance: ALBUTEROL SULFATE
     Indication: HYPERSENSITIVITY
  22. LORAZEPAM. [Concomitant]
     Active Substance: LORAZEPAM
     Indication: PRODUCT USED FOR UNKNOWN INDICATION
     Dates: start: 20150731
  23. VOLTAREN [Concomitant]
     Active Substance: DICLOFENAC SODIUM
     Indication: SCOLIOSIS
  24. PERCOCET [Concomitant]
     Active Substance: ACETAMINOPHEN\OXYCODONE HYDROCHLORIDE
     Indication: FIBROMYALGIA
  25. BACLOFEN. [Concomitant]
     Active Substance: BACLOFEN
     Indication: FIBROMYALGIA
  26. BACLOFEN. [Concomitant]
     Active Substance: BACLOFEN
     Indication: SCOLIOSIS
  27. GEODON [Concomitant]
     Active Substance: ZIPRASIDONE HYDROCHLORIDE\ZIPRASIDONE MESYLATE
     Indication: BIPOLAR DISORDER
     Dates: start: 20150731
  28. PROZAC [Concomitant]
     Active Substance: FLUOXETINE HYDROCHLORIDE
     Indication: PRODUCT USED FOR UNKNOWN INDICATION
     Dates: start: 20150227
  29. VOLTAREN [Concomitant]
     Active Substance: DICLOFENAC SODIUM
     Indication: OSTEOPOROSIS
  30. FLONASE [Concomitant]
     Active Substance: FLUTICASONE PROPIONATE
     Indication: HYPERSENSITIVITY
     Dates: start: 20150831
  31. DEPAKOTE [Concomitant]
     Active Substance: DIVALPROEX SODIUM
     Indication: BIPOLAR DISORDER
  32. WELLBUTRIN [Suspect]
     Active Substance: BUPROPION HYDROCHLORIDE
     Indication: PAIN
     Route: 065
  33. XYREM [Suspect]
     Active Substance: SODIUM OXYBATE
     Indication: NARCOLEPSY
     Route: 048
     Dates: start: 201012
  34. KETOTIFEN [Concomitant]
     Active Substance: KETOTIFEN
     Indication: PRODUCT USED FOR UNKNOWN INDICATION
     Dates: start: 20150831
  35. KETOROLAC [Concomitant]
     Active Substance: KETOROLAC\KETOROLAC TROMETHAMINE
     Indication: HYPERSENSITIVITY
  36. MAXALT [Concomitant]
     Active Substance: RIZATRIPTAN BENZOATE
     Indication: PRODUCT USED FOR UNKNOWN INDICATION
     Dates: start: 20141205
  37. PERCOCET [Concomitant]
     Active Substance: ACETAMINOPHEN\OXYCODONE HYDROCHLORIDE
     Indication: OSTEOARTHRITIS

REACTIONS (11)
  - Urticaria [Not Recovered/Not Resolved]
  - Sinusitis [Unknown]
  - Sleep apnoea syndrome [Recovering/Resolving]
  - Weight decreased [Unknown]
  - Weight increased [Recovered/Resolved]
  - Dyspnoea [Unknown]
  - Tachycardia [Unknown]
  - Ear infection staphylococcal [Unknown]
  - Panic attack [Not Recovered/Not Resolved]
  - Decreased appetite [Unknown]
  - Upper respiratory tract infection [Unknown]

NARRATIVE: CASE EVENT DATE: 201012
